FAERS Safety Report 25483279 (Version 1)
Quarter: 2025Q2

REPORT INFORMATION
  Report Type: Spontaneous
  Country: US (occurrence: US)
  Receive Date: 20250626
  Receipt Date: 20250626
  Transmission Date: 20250717
  Serious: No
  Sender: ELI LILLY AND COMPANY
  Company Number: US-ELI_LILLY_AND_COMPANY-US202506019953

PATIENT
  Age: 70 Year
  Sex: Female

DRUGS (3)
  1. ZEPBOUND [Suspect]
     Active Substance: TIRZEPATIDE
     Indication: Weight control
     Dosage: 2.5 MG, WEEKLY (1/W)
     Route: 065
     Dates: start: 20250614
  2. TIZANIDINE [Concomitant]
     Active Substance: TIZANIDINE
     Indication: Myalgia
  3. AMLODIPINE [Concomitant]
     Active Substance: AMLODIPINE BESYLATE
     Indication: Hypertension

REACTIONS (5)
  - Aggression [Recovering/Resolving]
  - Mental disorder [Recovering/Resolving]
  - Impulsive behaviour [Recovered/Resolved with Sequelae]
  - Confusional state [Unknown]
  - Blood pressure increased [Unknown]

NARRATIVE: CASE EVENT DATE: 20250615
